FAERS Safety Report 6672606-0 (Version None)
Quarter: 2010Q2

REPORT INFORMATION
  Report Type: 
  Country: None (occurrence: None)
  Receive Date: 20100408
  Receipt Date: 20100323
  Transmission Date: 20101027
  Serious: Yes (Other)
  Sender: FDA-Public Use
  Company Number: IT-BAYER-201020978GPV

PATIENT
  Age: 45 Year
  Sex: Female

DRUGS (1)
  1. NEXAVAR [Suspect]
     Indication: METASTATIC RENAL CELL CARCINOMA
     Route: 048

REACTIONS (5)
  - MUSCULAR WEAKNESS [None]
  - OPTIC NEURITIS [None]
  - PARAPARESIS [None]
  - POLYMENORRHOEA [None]
  - VISUAL ACUITY REDUCED [None]
